FAERS Safety Report 7797784-1 (Version None)
Quarter: 2011Q4

REPORT INFORMATION
  Report Type: 
  Country: None (occurrence: None)
  Receive Date: 20111005
  Receipt Date: 20111003
  Transmission Date: 20120403
  Serious: Yes (Hospitalization)
  Sender: FDA-Public Use
  Company Number: IT-AMGEN-ITASP2011051027

PATIENT
  Age: 73 Year
  Sex: Male

DRUGS (3)
  1. DACRIOSOL [Concomitant]
  2. NPLATE [Suspect]
     Indication: THROMBOCYTOPENIA
     Dosage: UNK
     Dates: start: 20110830, end: 20110913
  3. LANSOPRAZOLE [Concomitant]
     Route: 048

REACTIONS (2)
  - DEEP VEIN THROMBOSIS [None]
  - PULMONARY EMBOLISM [None]
